FAERS Safety Report 7738331-X (Version None)
Quarter: 2011Q3

REPORT INFORMATION
  Report Type: 
  Country: None (occurrence: None)
  Receive Date: 20110908
  Receipt Date: 20110906
  Transmission Date: 20111222
  Serious: Yes (Death)
  Sender: FDA-Public Use
  Company Number: ZM-ABBOTT-11P-189-0851012-00

PATIENT

DRUGS (2)
  1. LOPINAVIR/RITONAVIR [Suspect]
     Indication: MATERNAL EXPOSURE DURING PREGNANCY
     Route: 064
  2. LOPINAVIR/RITONAVIR [Suspect]
     Route: 063

REACTIONS (3)
  - EXPOSURE DURING BREAST FEEDING [None]
  - MATERNAL EXPOSURE DURING PREGNANCY [None]
  - DEATH [None]
